FAERS Safety Report 6619245-5 (Version None)
Quarter: 2010Q1

REPORT INFORMATION
  Report Type: 
  Country: None (occurrence: None)
  Receive Date: 20100304
  Receipt Date: 20100208
  Transmission Date: 20100710
  Serious: Yes (Life-Threatening, Hospitalization)
  Sender: FDA-Public Use
  Company Number: THYM-1001143

PATIENT
  Age: 69 Year
  Sex: Male
  Weight: 48 kg

DRUGS (6)
  1. THYMOGLOBULIN [Suspect]
     Indication: APLASTIC ANAEMIA
     Dosage: 3.75 MG/KG, QD, INTRAVENOUS
     Route: 042
     Dates: start: 20090630, end: 20090704
  2. THYMOGLOBULIN [Suspect]
  3. METHYLPREDNISOLONE [Concomitant]
  4. CYCLOSPORINE [Concomitant]
  5. FILGRASTIM (FILGRASTIM) [Concomitant]
  6. DEFEROXAMINE MESILATE (DEFEROXAMINE MESILATE) [Concomitant]

REACTIONS (6)
  - CYTOMEGALOVIRUS INFECTION [None]
  - EPSTEIN-BARR VIRUS INFECTION [None]
  - HERPES VIRUS INFECTION [None]
  - HYPERKALAEMIA [None]
  - LIVER DISORDER [None]
  - LYMPHOPROLIFERATIVE DISORDER [None]
